FAERS Safety Report 7601730-0 (Version None)
Quarter: 2011Q3

REPORT INFORMATION
  Report Type: 
  Country: None (occurrence: None)
  Receive Date: 20110711
  Receipt Date: 20110706
  Transmission Date: 20111222
  Serious: Yes (Hospitalization)
  Sender: FDA-Public Use
  Company Number: BR-ABBOTT-09P-020-0600803-00

PATIENT
  Sex: Female
  Weight: 100 kg

DRUGS (24)
  1. METHOTREXATE [Concomitant]
     Indication: RHEUMATOID ARTHRITIS
     Route: 048
  2. HUMIRA [Suspect]
     Indication: RHEUMATOID ARTHRITIS
     Dates: start: 20080101
  3. OMEPRAZOLE [Concomitant]
     Indication: GASTRIC DISORDER
     Route: 048
  4. OMEPRAZOLE [Concomitant]
     Indication: PROPHYLAXIS
  5. CLONAZEPAM [Concomitant]
     Indication: SEDATIVE THERAPY
     Route: 048
  6. LEVOTHYROXINE SODIUM [Concomitant]
     Indication: THYROID DISORDER
     Route: 048
  7. HYDROCHLOROTHIAZIDE [Concomitant]
     Indication: BLOOD PRESSURE
     Route: 048
  8. MELHORAL [Concomitant]
     Indication: ANTICOAGULANT THERAPY
  9. ENALAPRIL MALEATE [Concomitant]
     Indication: HYPERTENSION
     Route: 048
  10. VASTATIL [Concomitant]
     Indication: BLOOD CHOLESTEROL ABNORMAL
     Route: 048
  11. PREDNISONE [Concomitant]
     Indication: RHEUMATOID ARTHRITIS
     Route: 048
  12. FLUOXETINE [Concomitant]
     Indication: DEPRESSION
     Route: 048
  13. HYDROCHLOROTHIAZIDE [Concomitant]
     Indication: DIURETIC THERAPY
  14. OSCAL D [Concomitant]
     Indication: OSTEOPOROSIS
     Route: 048
  15. ENDOFOLIN [Concomitant]
     Indication: VITAMIN SUPPLEMENTATION
     Route: 048
  16. PREDNISONE [Concomitant]
     Indication: PAIN
     Route: 048
  17. HYDROCHLOROTHIAZIDE [Concomitant]
     Indication: HYPERTENSION
  18. ENALAPRIL MALEATE [Concomitant]
     Indication: BLOOD PRESSURE
  19. UNKNOWN COMBINED FORMULA [Concomitant]
     Indication: PRODUCT USED FOR UNKNOWN INDICATION
  20. ASPIRIN [Concomitant]
     Indication: ANTICOAGULANT THERAPY
     Route: 048
  21. CIMICIFUGA [Concomitant]
     Indication: HORMONE REPLACEMENT THERAPY
     Route: 048
  22. MELOXICAM [Concomitant]
     Indication: PAIN
     Route: 048
  23. RANITIDINE [Concomitant]
     Indication: PRODUCT USED FOR UNKNOWN INDICATION
     Route: 048
  24. CALCIUM CARBONATE [Concomitant]
     Indication: HORMONE REPLACEMENT THERAPY
     Route: 048

REACTIONS (18)
  - PLATELET COUNT INCREASED [None]
  - URINARY TRACT INFECTION [None]
  - WEIGHT INCREASED [None]
  - INCREASED APPETITE [None]
  - BLOOD PRESSURE INCREASED [None]
  - FALL [None]
  - LIMB INJURY [None]
  - NODULE [None]
  - OEDEMA PERIPHERAL [None]
  - SKIN MASS [None]
  - RED BLOOD CELL COUNT INCREASED [None]
  - PNEUMONIA [None]
  - OSTEOARTHRITIS [None]
  - FATIGUE [None]
  - PULMONARY CONGESTION [None]
  - HAEMATOMA [None]
  - BLOOD CHOLESTEROL INCREASED [None]
  - MUSCULOSKELETAL DISORDER [None]
